FAERS Safety Report 20073719 (Version 4)
Quarter: 2021Q4

REPORT INFORMATION
  Report Type: Spontaneous
  Country: FR (occurrence: FR)
  Receive Date: 20211116
  Receipt Date: 20211129
  Transmission Date: 20220303
  Serious: Yes (Hospitalization)
  Sender: FDA-Public Use
  Company Number: None

PATIENT
  Age: 18 Year
  Sex: Male
  Weight: 58 kg

DRUGS (9)
  1. GEMCITABINE [Suspect]
     Active Substance: GEMCITABINE
     Indication: Hodgkin^s disease nodular sclerosis recurrent
     Dosage: 1400 MILLIGRAM, Q4D
     Route: 041
     Dates: start: 20210719, end: 20210722
  2. BACTRIM [Suspect]
     Active Substance: SULFAMETHOXAZOLE\TRIMETHOPRIM
     Indication: Infection prophylaxis
     Dosage: 2400 MILLIGRAM, QW (800 MGX3/SEM)
     Route: 048
     Dates: start: 20200831, end: 20210727
  3. IFOSFAMIDE [Suspect]
     Active Substance: IFOSFAMIDE
     Indication: Hodgkin^s disease nodular sclerosis recurrent
     Dosage: 3500 MILLIGRAM, QD
     Route: 041
     Dates: start: 20210719, end: 20210722
  4. VINORELBINE [Suspect]
     Active Substance: VINORELBINE TARTRATE
     Indication: Hodgkin^s disease nodular sclerosis recurrent
     Dosage: 30 MILLIGRAM, CYCLE
     Route: 041
     Dates: start: 20210719, end: 20210719
  5. NAVELBINE [Suspect]
     Active Substance: VINORELBINE TARTRATE
     Indication: Off label use
     Dosage: UNK
  6. NAVELBINE [Suspect]
     Active Substance: VINORELBINE TARTRATE
     Indication: Hodgkin^s disease nodular sclerosis recurrent
     Dosage: 30 MILLIGRAM, CYCLE
     Route: 041
     Dates: start: 20210719, end: 20210719
  7. ALIZAPRIDE HYDROCHLORIDE [Concomitant]
     Active Substance: ALIZAPRIDE HYDROCHLORIDE
     Indication: Prophylaxis of nausea and vomiting
     Dosage: 50 MILLIGRAM, Q8H
     Route: 042
     Dates: start: 20210719, end: 20210723
  8. EMEND                              /01627301/ [Concomitant]
     Indication: Prophylaxis of nausea and vomiting
     Dosage: 125 MILLIGRAM
     Route: 048
     Dates: start: 20210719, end: 20210719
  9. EMEND                              /01627301/ [Concomitant]
     Dosage: 80 MILLIGRAM, QD
     Route: 048
     Dates: start: 20210720, end: 20210722

REACTIONS (3)
  - Dermatitis [Recovering/Resolving]
  - Product use in unapproved indication [Unknown]
  - Off label use [Unknown]

NARRATIVE: CASE EVENT DATE: 20210723
